FAERS Safety Report 11916828 (Version 5)
Quarter: 2016Q1

REPORT INFORMATION
  Report Type: Spontaneous
  Country: US (occurrence: US)
  Receive Date: 20160114
  Receipt Date: 20160309
  Transmission Date: 20160526
  Serious: No
  Sender: FDA-Public Use
  Company Number: US-PFIZER INC-2015450553

PATIENT
  Age: 71 Year
  Sex: Female
  Weight: 68 kg

DRUGS (16)
  1. BISOPROLOL HCT [Concomitant]
     Indication: BLOOD PRESSURE ABNORMAL
     Dosage: 2.5/6 MG, 1X/DAY
     Route: 048
  2. FENTANYL. [Concomitant]
     Active Substance: FENTANYL
     Indication: PAIN
     Dosage: 25 MG, CHANGES EVERY 72 HOURS
     Route: 062
     Dates: start: 201510
  3. HYDROCODONE ACETAM [Concomitant]
     Indication: ARTHRALGIA
  4. PRAVASTATIN [Concomitant]
     Active Substance: PRAVASTATIN\PRAVASTATIN SODIUM
     Indication: BLOOD CHOLESTEROL
     Dosage: 20 MG, 1X/DAY
     Route: 048
  5. HYDROCODONE BITARTRATE AND ACETAMINOPHEN [Concomitant]
     Active Substance: ACETAMINOPHEN\HYDROCODONE BITARTRATE
     Indication: ARTHRALGIA
  6. SYNTHROID [Concomitant]
     Active Substance: LEVOTHYROXINE SODIUM
     Indication: HYPOTHYROIDISM
     Dosage: 50 UG, 1X/DAY
     Route: 048
     Dates: start: 1990
  7. COENZYME Q10 [Concomitant]
     Active Substance: UBIDECARENONE
     Indication: BLOOD CHOLESTEROL
     Dosage: 100 MG, 1X/DAY
     Route: 048
  8. IBRANCE [Suspect]
     Active Substance: PALBOCICLIB
     Dosage: 100 MG, 21 DAYS: OFF 7 DAYS
     Route: 048
     Dates: start: 20151103, end: 2015
  9. IBRANCE [Suspect]
     Active Substance: PALBOCICLIB
     Dosage: 100 MG, ALTERNATE DAY
     Route: 048
     Dates: start: 20151208, end: 2015
  10. HYDROCODONE ACETAM [Concomitant]
     Indication: PELVIC PAIN
     Dosage: 1 DF, AS NEEDED (HYDROCODONE 7.5MG / PARACETAMOL 325MG, 1 A DAY AS NEEDED, TAKE 1 EVERY 6 HOURS)
  11. IBRANCE [Suspect]
     Active Substance: PALBOCICLIB
     Indication: BREAST CANCER METASTATIC
     Dosage: 100 MG, 1X/DAY (FOR 21 DAYS)
     Route: 048
     Dates: start: 20151105, end: 2015
  12. IBRANCE [Suspect]
     Active Substance: PALBOCICLIB
     Dosage: 75 MG, DAILY
     Route: 048
     Dates: start: 20151217
  13. FEMARA [Concomitant]
     Active Substance: LETROZOLE
     Indication: BREAST CANCER METASTATIC
     Dosage: 2.5 MG, 1X/DAY
     Route: 048
     Dates: start: 20151103
  14. FEMARA [Concomitant]
     Active Substance: LETROZOLE
     Dosage: 2.5 MG, 1X/DAY
     Route: 048
     Dates: start: 20151105
  15. ALPRAZOLAM. [Concomitant]
     Active Substance: ALPRAZOLAM
     Indication: ANXIETY
     Dosage: 1 MG, AS NEEDED (HALF DURING DAY AND WHOLE ONE AT NIGHT AS NEEDED)
     Route: 048
     Dates: start: 2015
  16. HYDROCODONE BITARTRATE AND ACETAMINOPHEN [Concomitant]
     Active Substance: ACETAMINOPHEN\HYDROCODONE BITARTRATE
     Indication: PELVIC PAIN
     Dosage: 7.5 MG HYDROCODONE/325MG PARACETAMOL AS NEEDED

REACTIONS (5)
  - Asthenia [Unknown]
  - Throat irritation [Recovered/Resolved]
  - White blood cell count decreased [Recovered/Resolved]
  - Eructation [Recovered/Resolved]
  - Oropharyngeal pain [Recovered/Resolved]

NARRATIVE: CASE EVENT DATE: 2015
